FAERS Safety Report 6097812-8 (Version None)
Quarter: 2009Q1

REPORT INFORMATION
  Report Type: 
  Country: None (occurrence: None)
  Receive Date: 20090227
  Receipt Date: 20090217
  Transmission Date: 20090719
  Serious: Yes (Life-Threatening)
  Sender: FDA-Public Use
  Company Number: FR-JNJFOC-20090206056

PATIENT
  Sex: Female

DRUGS (6)
  1. TOPALGIC [Suspect]
     Indication: DRUG USE FOR UNKNOWN INDICATION
     Route: 065
  2. TRIFLUCAN [Suspect]
     Indication: CANDIDIASIS
     Route: 065
  3. TRIFLUCAN [Suspect]
     Indication: PLEURISY
     Route: 065
  4. TRIFLUCAN [Suspect]
     Indication: SUBDIAPHRAGMATIC ABSCESS
     Route: 065
  5. MOPRAL [Suspect]
     Indication: DRUG USE FOR UNKNOWN INDICATION
     Route: 065
  6. ADRENALINE [Concomitant]

REACTIONS (4)
  - CONFUSIONAL STATE [None]
  - ENCEPHALOPATHY [None]
  - MYOCLONUS [None]
  - STATUS EPILEPTICUS [None]
